FAERS Safety Report 14454153 (Version 1)
Quarter: 2018Q1

REPORT INFORMATION
  Report Type: Spontaneous
  Country: BR (occurrence: BR)
  Receive Date: 20180129
  Receipt Date: 20180129
  Transmission Date: 20180509
  Serious: Yes (Other)
  Sender: FDA-Public Use
  Company Number: PHHY2018BR013884

PATIENT
  Sex: Male
  Weight: 75 kg

DRUGS (1)
  1. DIOVAN [Suspect]
     Active Substance: VALSARTAN
     Indication: HYPERTENSION
     Dosage: 1 DF, QD
     Route: 048

REACTIONS (9)
  - Myocardial infarction [Unknown]
  - Macular degeneration [Unknown]
  - Aortic aneurysm [Unknown]
  - Depression [Unknown]
  - Dementia Alzheimer^s type [Unknown]
  - Haemorrhage [Unknown]
  - Restless legs syndrome [Unknown]
  - Benign prostatic hyperplasia [Unknown]
  - Anaemia [Unknown]
